FAERS Safety Report 6110954-3 (Version None)
Quarter: 2009Q1

REPORT INFORMATION
  Report Type: 
  Country: None (occurrence: None)
  Receive Date: 20090310
  Receipt Date: 20090310
  Transmission Date: 20090719
  Serious: No
  Sender: FDA-Public Use
  Company Number: None

PATIENT
  Age: 81 Year
  Sex: Female

DRUGS (1)
  1. ADVAIR HFA [Suspect]

REACTIONS (3)
  - DYSPNOEA [None]
  - HEADACHE [None]
  - RESPIRATORY DISORDER [None]
